FAERS Safety Report 7692298-1 (Version None)
Quarter: 2011Q3

REPORT INFORMATION
  Report Type: 
  Country: None (occurrence: None)
  Receive Date: 20110818
  Receipt Date: 20110805
  Transmission Date: 20111222
  Serious: Yes (Hospitalization)
  Sender: FDA-Public Use
  Company Number: FR-MYLANLABS-2011S1016417

PATIENT
  Age: 53 Year
  Sex: Female

DRUGS (6)
  1. PANTOPRAZOLE [Interacting]
     Dosage: 20 MG/DAY
     Route: 065
  2. SODIUM BICARBONATE [Concomitant]
     Dosage: 1.5L INFUSION
     Route: 042
  3. FLUOXETINE [Concomitant]
     Dosage: 20 MG/DAY
     Route: 065
  4. METHOTREXATE [Suspect]
     Indication: PRECURSOR T-LYMPHOBLASTIC LYMPHOMA/LEUKAEMIA
     Dosage: INFUSION AT 5040MG OVER 24H
     Route: 065
  5. GLUCOSE [Concomitant]
     Dosage: 3L OF GLUCOSE 5%
     Route: 065
  6. VALACICLOVIR [Concomitant]
     Dosage: 1000 MG/DAY
     Route: 065

REACTIONS (2)
  - DRUG INTERACTION [None]
  - RENAL FAILURE [None]
